FAERS Safety Report 7886628-5 (Version None)
Quarter: 2011Q4

REPORT INFORMATION
  Report Type: 
  Country: None (occurrence: None)
  Receive Date: 20111102
  Receipt Date: 20110708
  Transmission Date: 20120403
  Serious: No
  Sender: FDA-Public Use
  Company Number: US-AMGEN-USASP2011030629

PATIENT
  Age: 27 Year
  Sex: Female
  Weight: 91.156 kg

DRUGS (6)
  1. PERCOCET [Concomitant]
     Indication: PAIN
     Dosage: 10 MG, TID AND AS REQUIRED
  2. ENBREL [Suspect]
     Indication: PSORIATIC ARTHROPATHY
     Dosage: 50 MG, QWK
     Dates: start: 20110301
  3. FOLIC ACID [Concomitant]
     Indication: PSORIATIC ARTHROPATHY
     Dosage: 1 MG, QD
     Route: 048
  4. METHOTREXATE [Concomitant]
     Indication: PSORIATIC ARTHROPATHY
     Dosage: 15 MG, QWK
     Route: 048
     Dates: start: 20101206
  5. ORTHO TRI-CYCLEN [Concomitant]
     Indication: CONTRACEPTION
     Dosage: UNK UNK, QD
     Route: 048
  6. LASIX [Concomitant]
     Indication: SWELLING
     Dosage: 10 MG, PRN
     Route: 048

REACTIONS (2)
  - INJECTION SITE ERYTHEMA [None]
  - INJECTION SITE REACTION [None]
